FAERS Safety Report 8016044-7 (Version None)
Quarter: 2011Q4

REPORT INFORMATION
  Report Type: 
  Country: None (occurrence: None)
  Receive Date: 20111230
  Receipt Date: 20111230
  Transmission Date: 20120403
  Serious: No
  Sender: FDA-Public Use
  Company Number: None

PATIENT
  Age: 1 Day
  Sex: Female
  Weight: 2.6 kg

DRUGS (1)
  1. PHYTONADIONE [Suspect]
     Indication: HAEMORRHAGE PROPHYLAXIS
     Dosage: 1 MG
     Route: 030
     Dates: start: 20111220, end: 20111222

REACTIONS (3)
  - INJECTION SITE HAEMORRHAGE [None]
  - INJECTION SITE HAEMATOMA [None]
  - NEEDLE ISSUE [None]
